APPROVED DRUG PRODUCT: XOFIGO
Active Ingredient: RADIUM RA-223 DICHLORIDE
Strength: 162mCi/6ML (27mCi/ML)
Dosage Form/Route: SOLUTION;INTRAVENOUS
Application: N203971 | Product #001
Applicant: BAYER HEALTHCARE PHARMACEUTICALS INC
Approved: May 15, 2013 | RLD: Yes | RS: Yes | Type: RX